FAERS Safety Report 9308161 (Version 1)
Quarter: 2013Q2

REPORT INFORMATION
  Report Type: Spontaneous
  Country: GB (occurrence: GB)
  Receive Date: 20130524
  Receipt Date: 20130524
  Transmission Date: 20140414
  Serious: Yes (Other)
  Sender: FDA-Public Use
  Company Number: GB-PFIZER INC-2013155093

PATIENT
  Age: 65 Year
  Sex: Female

DRUGS (1)
  1. DALACIN [Suspect]
     Dosage: UNK

REACTIONS (2)
  - Throat cancer [Unknown]
  - Dysphagia [Unknown]
